FAERS Safety Report 12667997 (Version 10)
Quarter: 2018Q1

REPORT INFORMATION
  Report Type: Report from Study
  Country: US (occurrence: US)
  Receive Date: 20160819
  Receipt Date: 20180314
  Transmission Date: 20180508
  Serious: Yes (Hospitalization, Disabling, Other)
  Sender: FDA-Public Use
  Company Number: US-SAOL THERAPEUTICS-2016SAO00208

PATIENT
  Age: 45 Year
  Sex: Female

DRUGS (6)
  1. COMPOUNDED BACLOFEN [Suspect]
     Active Substance: BACLOFEN
     Indication: SPINAL CORD INJURY
     Dosage: 449.7 ?G, \DAY
  2. BACLOFEN. [Suspect]
     Active Substance: BACLOFEN
     Dosage: 701 ?G/ML, \DAY
     Route: 037
  3. BACLOFEN. [Suspect]
     Active Substance: BACLOFEN
     Dosage: 800 ?G, \DAY
  4. COMPOUNDED BACLOFEN [Suspect]
     Active Substance: BACLOFEN
     Indication: CENTRAL PAIN SYNDROME
     Dosage: 449.9 ?G, \DAY
     Route: 037
  5. BACLOFEN. [Suspect]
     Active Substance: BACLOFEN
     Dosage: 750 ?G, \DAY
  6. BUPIVACAINE. [Suspect]
     Active Substance: BUPIVACAINE
     Dosage: 11.216 MG, \DAY

REACTIONS (23)
  - Wound infection staphylococcal [Unknown]
  - Complication associated with device [Unknown]
  - Amnesia [Not Recovered/Not Resolved]
  - Device malfunction [Unknown]
  - Deja vu [Unknown]
  - Medical device discomfort [Unknown]
  - Muscle spasticity [Not Recovered/Not Resolved]
  - Hyperhidrosis [Unknown]
  - Pain [Unknown]
  - Loss of consciousness [Recovered/Resolved]
  - Dysarthria [Recovered/Resolved]
  - Unevaluable event [Unknown]
  - Medical device site ulcer [Unknown]
  - Performance status decreased [Unknown]
  - Urinary tract infection [Unknown]
  - Therapeutic response decreased [Not Recovered/Not Resolved]
  - Hypoaesthesia [Unknown]
  - Implant site scar [Unknown]
  - Device occlusion [Unknown]
  - Hypertonic bladder [Not Recovered/Not Resolved]
  - Hot flush [Unknown]
  - Paraesthesia [Unknown]
  - Muscle tightness [Unknown]

NARRATIVE: CASE EVENT DATE: 2016
